FAERS Safety Report 7527255-9 (Version None)
Quarter: 2011Q2

REPORT INFORMATION
  Report Type: 
  Country: None (occurrence: None)
  Receive Date: 20110607
  Receipt Date: 20110523
  Transmission Date: 20111010
  Serious: No
  Sender: FDA-Public Use
  Company Number: US-BIOGENIDEC-2011BI020143

PATIENT
  Sex: Female

DRUGS (2)
  1. AVONEX [Suspect]
     Indication: MULTIPLE SCLEROSIS
     Route: 030
     Dates: start: 20110506
  2. AVONEX [Suspect]
     Route: 030
     Dates: start: 20040813, end: 20080418

REACTIONS (2)
  - INJECTION SITE PAIN [None]
  - INJECTION SITE HAEMORRHAGE [None]
